FAERS Safety Report 5571409-8 (Version None)
Quarter: 2007Q4

REPORT INFORMATION
  Report Type: 
  Country: None (occurrence: None)
  Receive Date: 20071221
  Receipt Date: 20071023
  Transmission Date: 20080405
  Serious: No
  Sender: FDA-Public Use
  Company Number: A0689221A

PATIENT
  Age: 76 Year
  Sex: Female

DRUGS (1)
  1. FLONASE [Suspect]
     Route: 045
     Dates: start: 20010101, end: 20070901

REACTIONS (1)
  - DRUG INEFFECTIVE [None]
